FAERS Safety Report 6894847-X (Version None)
Quarter: 2010Q3

REPORT INFORMATION
  Report Type: 
  Country: None (occurrence: None)
  Receive Date: 20100730
  Receipt Date: 20100730
  Transmission Date: 20110219
  Serious: Yes (Other)
  Sender: FDA-Public Use
  Company Number: None

PATIENT
  Sex: Female
  Weight: 83.9154 kg

DRUGS (1)
  1. COREG [Suspect]
     Indication: CARDIAC DISORDER
     Dosage: 2 TABLETS DAILY MORNING, NIGHT
     Dates: start: 20091201, end: 20100701

REACTIONS (4)
  - BLOOD GLUCOSE DECREASED [None]
  - FEAR [None]
  - HALLUCINATION [None]
  - NIGHTMARE [None]
